FAERS Safety Report 17361575 (Version 1)
Quarter: 2020Q1

REPORT INFORMATION
  Report Type: Spontaneous
  Country: US (occurrence: US)
  Receive Date: 20200203
  Receipt Date: 20200203
  Transmission Date: 20200409
  Serious: No
  Sender: FDA-Public Use
  Company Number: US-PFIZER INC-2020044690

PATIENT
  Age: 75 Year
  Sex: Male
  Weight: 91.61 kg

DRUGS (1)
  1. FLAGYL [Suspect]
     Active Substance: METRONIDAZOLE\METRONIDAZOLE HYDROCHLORIDE
     Dosage: 250 MG, UNK

REACTIONS (2)
  - Diarrhoea [Unknown]
  - Hypersensitivity [Unknown]
